FAERS Safety Report 11132471 (Version 3)
Quarter: 2015Q2

REPORT INFORMATION
  Report Type: Spontaneous
  Country: US (occurrence: US)
  Receive Date: 20150522
  Receipt Date: 20150630
  Transmission Date: 20150821
  Serious: No
  Sender: FDA-Public Use
  Company Number: US-009507513-1505USA009908

PATIENT
  Sex: Male

DRUGS (6)
  1. SIMVASTATIN TABLETS, USP [Concomitant]
     Active Substance: SIMVASTATIN
  2. KLONOPIN [Concomitant]
     Active Substance: CLONAZEPAM
  3. REMERON [Suspect]
     Active Substance: MIRTAZAPINE
     Dosage: 30 MG, ONCE DAILY IN THE EVENING
     Route: 048
     Dates: start: 2015, end: 2015
  4. NEXIUM [Concomitant]
     Active Substance: ESOMEPRAZOLE MAGNESIUM
  5. REMERON [Suspect]
     Active Substance: MIRTAZAPINE
     Indication: DEPRESSION
     Dosage: 30 MG, ONCE DAILY IN THE EVENING
     Route: 048
     Dates: start: 201501, end: 2015
  6. AVODART [Concomitant]
     Active Substance: DUTASTERIDE

REACTIONS (1)
  - Night sweats [Not Recovered/Not Resolved]

NARRATIVE: CASE EVENT DATE: 2015
